FAERS Safety Report 21057272 (Version 1)
Quarter: 2022Q3

REPORT INFORMATION
  Report Type: Spontaneous
  Country: US (occurrence: None)
  Receive Date: 20220707
  Receipt Date: 20220707
  Transmission Date: 20221026
  Serious: Yes (Life-Threatening, Hospitalization, Disabling)
  Sender: FDA-Public Use
  Company Number: None

PATIENT
  Age: 53 Year
  Sex: Female
  Weight: 77.4 kg

DRUGS (3)
  1. RISPERIDONE [Suspect]
     Active Substance: RISPERIDONE
     Indication: Mood swings
     Route: 048
  2. RISPERIDONE [Concomitant]
     Active Substance: RISPERIDONE
  3. Amlodepine [Concomitant]

REACTIONS (20)
  - Weight increased [None]
  - Blood glucose increased [None]
  - Somnolence [None]
  - Fatigue [None]
  - Wheezing [None]
  - Secretion discharge [None]
  - Throat irritation [None]
  - Dysphonia [None]
  - Dysphagia [None]
  - Thirst [None]
  - Musculoskeletal stiffness [None]
  - Drooling [None]
  - Libido decreased [None]
  - Heart rate increased [None]
  - Dyspepsia [None]
  - Diarrhoea [None]
  - Rhinorrhoea [None]
  - Insomnia [None]
  - Back pain [None]
  - Myalgia [None]

NARRATIVE: CASE EVENT DATE: 20180311
